FAERS Safety Report 8940402 (Version 3)
Quarter: 2013Q1

REPORT INFORMATION
  Report Type: Spontaneous
  Country: GB (occurrence: GB)
  Receive Date: 20121203
  Receipt Date: 20130207
  Transmission Date: 20140127
  Serious: Yes (Other)
  Sender: FDA-Public Use
  Company Number: GB-MYLANLABS-2012S1024153

PATIENT
  Age: 38 Year
  Sex: Male

DRUGS (7)
  1. DOXYCYCLINE [Suspect]
     Indication: URINARY TRACT INFECTION
     Dates: start: 201111
  2. MINOCYCLINE [Suspect]
     Indication: PRODUCT USED FOR UNKNOWN INDICATION
  3. OMEPRAZOLE [Suspect]
     Indication: ABDOMINAL PAIN
     Dates: start: 201106
  4. OMEPRAZOLE [Suspect]
     Indication: ABDOMINAL PAIN
     Dates: start: 201109
  5. SEROQUEL [Suspect]
     Indication: PRODUCT USED FOR UNKNOWN INDICATION
  6. CIPROFLOXACIN HYDROCHLORIDE [Suspect]
     Indication: PRODUCT USED FOR UNKNOWN INDICATION
     Dates: start: 201206
  7. LAXIDO [Concomitant]
     Indication: PRODUCT USED FOR UNKNOWN INDICATION

REACTIONS (21)
  - Dehydration [Unknown]
  - Skin depigmentation [Unknown]
  - Malaise [Unknown]
  - Skin exfoliation [Unknown]
  - Gastrooesophageal reflux disease [Unknown]
  - Hair colour changes [Unknown]
  - Alopecia [Unknown]
  - Headache [Unknown]
  - Tooth injury [Unknown]
  - Drug ineffective [Unknown]
  - Mass [Unknown]
  - Melanocytic naevus [Unknown]
  - Skin discolouration [Unknown]
  - Abdominal discomfort [Unknown]
  - Gastric ulcer [Unknown]
  - Photosensitivity reaction [Unknown]
  - Chromaturia [Unknown]
  - Bone pain [Unknown]
  - Dental caries [Unknown]
  - Protein total abnormal [Unknown]
  - Tendonitis [Unknown]
